FAERS Safety Report 23894304 (Version 2)
Quarter: 2024Q3

REPORT INFORMATION
  Report Type: Spontaneous
  Country: SK (occurrence: SK)
  Receive Date: 20240524
  Receipt Date: 20240712
  Transmission Date: 20241016
  Serious: Yes (Hospitalization, Other)
  Sender: NOVARTIS
  Company Number: SK-002147023-NVSC2024SK105744

PATIENT
  Age: 53 Year
  Sex: Male

DRUGS (1)
  1. COSENTYX [Suspect]
     Active Substance: SECUKINUMAB
     Indication: Hidradenitis
     Dosage: 300 MG, (WEEK 0, 1, 2, 3, 4 AFTER EVERY 4 WEEKS)
     Route: 065
     Dates: start: 20240222, end: 20240411

REACTIONS (4)
  - Multiple organ dysfunction syndrome [Recovering/Resolving]
  - Chronic kidney disease [Recovering/Resolving]
  - Kidney enlargement [Recovering/Resolving]
  - Failure to thrive [Recovering/Resolving]

NARRATIVE: CASE EVENT DATE: 20240425
